FAERS Safety Report 19237314 (Version 2)
Quarter: 2021Q3

REPORT INFORMATION
  Report Type: Spontaneous
  Country: GB (occurrence: GB)
  Receive Date: 20210510
  Receipt Date: 20210820
  Transmission Date: 20211014
  Serious: Yes (Hospitalization)
  Sender: FDA-Public Use
  Company Number: GB-TORRENT-00025596

PATIENT
  Age: 54 Year
  Sex: Female

DRUGS (1)
  1. ESCITALOPRAM [Suspect]
     Active Substance: ESCITALOPRAM OXALATE
     Indication: ILL-DEFINED DISORDER
     Dosage: ONE DAILY
     Route: 048

REACTIONS (5)
  - Product dose omission in error [Unknown]
  - Medication error [Unknown]
  - Product dispensing error [Unknown]
  - Somnolence [Unknown]
  - Malaise [Unknown]
